FAERS Safety Report 9346558 (Version 2)
Quarter: 2013Q2

REPORT INFORMATION
  Report Type: Spontaneous
  Country: SE (occurrence: SE)
  Receive Date: 20130613
  Receipt Date: 20130620
  Transmission Date: 20140414
  Serious: Yes (Hospitalization)
  Sender: FDA-Public Use
  Company Number: SE-SANOFI-AVENTIS-2013SA057081

PATIENT
  Age: 71 Year
  Sex: Female

DRUGS (14)
  1. KLEXANE [Suspect]
     Indication: ANTICOAGULANT THERAPY
     Route: 065
     Dates: start: 20130130
  2. OXYNORM [Concomitant]
     Dosage: STRENGTH: 5 MG
     Route: 065
  3. URSOFALK [Concomitant]
     Dosage: STRENGTH: 250MG
     Route: 065
  4. BETAPRED [Concomitant]
     Dosage: STRENGTH: 0.5MG
     Route: 065
  5. SOBRIL [Concomitant]
     Dosage: STRENGTH: 15MG
     Route: 065
  6. INDERAL [Concomitant]
     Dosage: STRENGTH: 40MG
     Route: 065
  7. IMUREL [Concomitant]
     Dosage: STRENGTH: 50MG
     Route: 065
  8. XYLOPROCT [Concomitant]
     Route: 065
  9. FURIX [Concomitant]
     Dosage: STRENGTH: 40MG
     Route: 065
  10. SPIRONOLACTONE [Concomitant]
     Dosage: STRENGTH: 50MG
     Route: 065
  11. OMEPRAZOLE [Concomitant]
     Dosage: STRENGTH: 20MG
     Route: 065
  12. LACTULOSE [Concomitant]
     Route: 065
  13. MOVICOL [Concomitant]
     Route: 065
  14. CALCITUGG [Concomitant]
     Dosage: STRENGTH: 500MG
     Route: 065

REACTIONS (13)
  - Oedema [Unknown]
  - C-reactive protein increased [Unknown]
  - Thrombocytopenia [Unknown]
  - Abdominal wall haematoma [Unknown]
  - Petechiae [Unknown]
  - Liver function test abnormal [Unknown]
  - Hyperbilirubinaemia [Unknown]
  - Hypoalbuminaemia [Unknown]
  - Coordination abnormal [Unknown]
  - Gait disturbance [Unknown]
  - Dizziness [Unknown]
  - Confusional state [Unknown]
  - Visual acuity reduced [Unknown]
